FAERS Safety Report 4678300-X (Version None)
Quarter: 2005Q2

REPORT INFORMATION
  Report Type: 
  Country: None (occurrence: None)
  Receive Date: 20050527
  Receipt Date: 20050519
  Transmission Date: 20051028
  Serious: Yes (Hospitalization, Other)
  Sender: FDA-Public Use
  Company Number: 2005077209

PATIENT
  Age: 76 Year
  Sex: Male

DRUGS (2)
  1. GABAPENTIN [Suspect]
     Indication: NEUROPATHIC PAIN
     Dosage: 3600 MG (1200 MG, 3 IN 1 D), ORAL
     Route: 048
  2. PERCOCET [Suspect]
     Indication: NEUROPATHIC PAIN
     Dosage: ORAL
     Route: 048
     Dates: start: 20040101, end: 20050101

REACTIONS (3)
  - AMNESIA [None]
  - INCORRECT DOSE ADMINISTERED [None]
  - NEUROPATHIC PAIN [None]
